FAERS Safety Report 9260741 (Version 2)
Quarter: 2013Q2

REPORT INFORMATION
  Report Type: Spontaneous
  Country: US (occurrence: US)
  Receive Date: 20130429
  Receipt Date: 20130613
  Transmission Date: 20140414
  Serious: No
  Sender: FDA-Public Use
  Company Number: US-PFIZER INC-2013133407

PATIENT
  Age: 63 Year
  Sex: Female
  Weight: 77.1 kg

DRUGS (8)
  1. LYRICA [Suspect]
     Indication: PAIN
     Dosage: 100 MG, 1X/DAY
     Route: 048
     Dates: start: 2011
  2. LYRICA [Suspect]
     Dosage: 50 MG X 2 DAILY
  3. BACLOFEN [Concomitant]
     Dosage: UNK
  4. AVONEX [Concomitant]
     Dosage: UNK, ONCE A WEEK
  5. FLOMAX [Concomitant]
     Dosage: UNK
  6. ATORVASTATIN [Concomitant]
     Dosage: UNK
  7. LISINOPRIL [Concomitant]
     Dosage: UNK
  8. THYROXINE [Concomitant]
     Dosage: UNK

REACTIONS (2)
  - Body height decreased [Unknown]
  - Off label use [Unknown]
